FAERS Safety Report 21674281 (Version 2)
Quarter: 2023Q1

REPORT INFORMATION
  Report Type: Report from Study
  Country: FR (occurrence: FR)
  Receive Date: 20221202
  Receipt Date: 20230201
  Transmission Date: 20230417
  Serious: Yes (Other)
  Sender: FDA-Public Use
  Company Number: FR-SERVIER-S21008634

PATIENT

DRUGS (18)
  1. PEGASPARGASE [Suspect]
     Active Substance: PEGASPARGASE
     Indication: Acute lymphocytic leukaemia
     Dosage: 1950 IU, OTHER
     Route: 042
     Dates: start: 20210502, end: 20210502
  2. VINCRISTINE [Suspect]
     Active Substance: VINCRISTINE
     Indication: Acute lymphocytic leukaemia
     Dosage: 1.2 MG, D8 AND D15
     Route: 042
     Dates: start: 20180427, end: 20180505
  3. DAUNORUBICIN [Suspect]
     Active Substance: DAUNORUBICIN
     Indication: Acute lymphocytic leukaemia
     Dosage: 31 MG, ON D8 AND D15
     Route: 042
     Dates: start: 20180427, end: 20180505
  4. CYCLOPHOSPHAMIDE [Suspect]
     Active Substance: CYCLOPHOSPHAMIDE
     Indication: Acute lymphocytic leukaemia
     Dosage: 780 MG ON D9
     Route: 042
     Dates: start: 20180428, end: 20180428
  5. CYTARABINE [Suspect]
     Active Substance: CYTARABINE
     Indication: Acute lymphocytic leukaemia
     Dosage: 30 MG, D18
     Route: 037
     Dates: start: 20180508, end: 20180508
  6. METHOTREXATE [Suspect]
     Active Substance: METHOTREXATE
     Indication: Acute lymphocytic leukaemia
     Dosage: 12 MG, D18
     Route: 037
     Dates: start: 20180508, end: 20180508
  7. PREDNISOLONE [Suspect]
     Active Substance: PREDNISOLONE
     Indication: Acute lymphocytic leukaemia
     Dosage: D8 TO D28
     Route: 065
     Dates: start: 20180427, end: 20180517
  8. HYDROCORTISONE [Suspect]
     Active Substance: HYDROCORTISONE
     Indication: Acute lymphocytic leukaemia
     Dosage: 15 MG ON D9, D13 AND D18
     Route: 037
     Dates: start: 20180428, end: 20180508
  9. MORPHINE [Concomitant]
     Active Substance: MORPHINE
     Indication: Mucosal inflammation
     Dosage: 1 MG, QD
     Route: 042
     Dates: start: 20180509, end: 20180531
  10. ACETAMINOPHEN [Concomitant]
     Active Substance: ACETAMINOPHEN
     Indication: Mucosal inflammation
     Dosage: 300 MG, QD
     Route: 042
     Dates: start: 20180508, end: 20180523
  11. CEFTAZIDIME [Concomitant]
     Active Substance: CEFTAZIDIME
     Indication: Lung disorder
     Dosage: 3 G, QD
     Route: 042
     Dates: start: 20180506, end: 20180523
  12. AMIKACIN [Concomitant]
     Active Substance: AMIKACIN
     Indication: Lung disorder
     Dosage: 250 MG
     Route: 042
     Dates: start: 20180509, end: 20180519
  13. POVIDONE-IODINE [Concomitant]
     Active Substance: POVIDONE-IODINE
     Indication: Bacterial infection
     Dosage: 4 DF
     Route: 065
     Dates: start: 20180420
  14. POVIDONE-IODINE [Concomitant]
     Active Substance: POVIDONE-IODINE
     Indication: Prophylaxis
  15. NYSTATIN [Concomitant]
     Active Substance: NYSTATIN
     Indication: Candida infection
     Dosage: 8 ML, QD
     Route: 048
     Dates: start: 20180420
  16. NYSTATIN [Concomitant]
     Active Substance: NYSTATIN
     Indication: Prophylaxis
  17. SULFAMETHOXAZOLE AND TRIMETHOPRIM [Concomitant]
     Active Substance: SULFAMETHOXAZOLE\TRIMETHOPRIM
     Indication: Bacterial infection
     Dosage: 20 ML, QD
     Route: 048
     Dates: start: 20180423
  18. SULFAMETHOXAZOLE AND TRIMETHOPRIM [Concomitant]
     Active Substance: SULFAMETHOXAZOLE\TRIMETHOPRIM
     Indication: Prophylaxis

REACTIONS (4)
  - Hyperbilirubinaemia [Recovered/Resolved]
  - Gamma-glutamyltransferase increased [Recovered/Resolved]
  - Stress ulcer [Recovered/Resolved]
  - Melaena [Recovered/Resolved]

NARRATIVE: CASE EVENT DATE: 20180519
